FAERS Safety Report 8862022 (Version 1)
Quarter: 2012Q4

REPORT INFORMATION
  Report Type: 
  Country: US (occurrence: US)
  Receive Date: 20121025
  Receipt Date: 20121025
  Transmission Date: 20130627
  Serious: Yes (Other)
  Sender: FDA-Public Use
  Company Number: US-SANOFI-AVENTIS-2012SA075421

PATIENT
  Sex: Female

DRUGS (2)
  1. LANTUS [Suspect]
     Dosage: Dose:42 unit(s)
     Route: 058
  2. NOVOLOG [Suspect]
     Route: 065

REACTIONS (2)
  - Pancreatic disorder [Unknown]
  - Renal disorder [Unknown]
